FAERS Safety Report 9203143 (Version 1)
Quarter: 2013Q1

REPORT INFORMATION
  Report Type: Spontaneous
  Country: FR (occurrence: None)
  Receive Date: 20130328
  Receipt Date: 20130328
  Transmission Date: 20140127
  Serious: Yes (Other)
  Sender: FDA-Public Use
  Company Number: 2013-05438

PATIENT
  Age: 26 Year
  Sex: Male

DRUGS (4)
  1. RISPERDONE 4MG 1 HS [Suspect]
     Indication: SCHIZOPHRENIA, PARANOID TYPE
  2. HALOPERIDOL (HALOPERIDOL) (HALOPERIDOL) [Suspect]
     Indication: SCHIZOPHRENIA, PARANOID TYPE
  3. CYAMEMAZINE [Suspect]
  4. ALIMEMAZINE [Suspect]
     Indication: SCHIZOPHRENIA, PARANOID TYPE

REACTIONS (3)
  - Rhabdomyolysis [None]
  - Pain in extremity [None]
  - Fall [None]
